FAERS Safety Report 8568106 (Version 3)
Quarter: 2013Q2

REPORT INFORMATION
  Report Type: Spontaneous
  Country: US (occurrence: US)
  Receive Date: 20120518
  Receipt Date: 20130506
  Transmission Date: 20140414
  Serious: Yes (Other)
  Sender: FDA-Public Use
  Company Number: US-PFIZER INC-2012118049

PATIENT
  Sex: Female

DRUGS (3)
  1. LIPITOR [Suspect]
     Dosage: UNK
  2. SINGULAIR [Suspect]
     Dosage: UNK
  3. ZETIA [Concomitant]
     Dosage: UNK

REACTIONS (5)
  - Urinary tract infection [Unknown]
  - Hearing impaired [Unknown]
  - Epistaxis [Unknown]
  - Allergic sinusitis [Unknown]
  - Ear discomfort [Unknown]
